FAERS Safety Report 25460559 (Version 1)
Quarter: 2025Q2

REPORT INFORMATION
  Report Type: Spontaneous
  Country: US (occurrence: None)
  Receive Date: 20250619
  Receipt Date: 20250619
  Transmission Date: 20250716
  Serious: Yes (Hospitalization)
  Sender: FDA-CTU
  Company Number: None

PATIENT
  Age: 54 Year
  Sex: Male

DRUGS (1)
  1. VENCLEXTA [Suspect]
     Active Substance: VENETOCLAX
     Indication: Chronic lymphocytic leukaemia
     Dosage: OTHER QUANTITY : 20MG WEEK 1, 50MG WK 2, 100MG WK3, 200MG WK 4;?FREQUENCY : DAILY;?
     Route: 048

REACTIONS (2)
  - Chronic lymphocytic leukaemia [None]
  - Acute lymphocytic leukaemia [None]
